FAERS Safety Report 8278213 (Version 4)
Quarter: 2012Q4

REPORT INFORMATION
  Report Type: 
  Country: CA (occurrence: CA)
  Receive Date: 20111207
  Receipt Date: 20121130
  Transmission Date: 20130627
  Serious: Yes (Other)
  Sender: FDA-Public Use
  Company Number: PHHY2011CA106245

PATIENT
  Sex: Female

DRUGS (3)
  1. ACLASTA [Suspect]
     Indication: OSTEOPOROSIS
     Dosage: UNK UKN, UNK
     Route: 042
     Dates: start: 20101206
  2. ACLASTA [Suspect]
     Dosage: UNK UKN, UNK
     Route: 042
     Dates: start: 20111205
  3. VISALINE [Concomitant]
     Dosage: UNK UKN, UNK

REACTIONS (4)
  - Visual acuity reduced [Unknown]
  - Eye haemorrhage [Unknown]
  - Glomerular filtration rate abnormal [Unknown]
  - Blood creatinine increased [Unknown]
